FAERS Safety Report 24862721 (Version 3)
Quarter: 2025Q3

REPORT INFORMATION
  Report Type: Spontaneous
  Country: EU (occurrence: EU)
  Receive Date: 20250120
  Receipt Date: 20250810
  Transmission Date: 20251020
  Serious: Yes (Hospitalization, Other)
  Sender: ALEXION PHARMACEUTICALS
  Company Number: EU-AstraZeneca-CH-00784212A

PATIENT
  Age: 43 Year
  Sex: Female

DRUGS (1)
  1. LYNPARZA [Suspect]
     Active Substance: OLAPARIB
     Indication: Cholangiocarcinoma
     Route: 065

REACTIONS (4)
  - Post procedural infection [Unknown]
  - Malignant neoplasm progression [Unknown]
  - Off label use [Unknown]
  - Ascites [Unknown]
